FAERS Safety Report 18696686 (Version 1)
Quarter: 2021Q1

REPORT INFORMATION
  Report Type: Other
  Country: US (occurrence: US)
  Receive Date: 20210104
  Receipt Date: 20210104
  Transmission Date: 20210419
  Serious: No
  Sender: FDA-Public Use
  Company Number: US-ROCHE-2584058

PATIENT
  Age: 62 Year
  Sex: Female

DRUGS (4)
  1. ACTIVASE [Suspect]
     Active Substance: ALTEPLASE
     Indication: ACUTE RESPIRATORY DISTRESS SYNDROME
  2. ACTIVASE [Suspect]
     Active Substance: ALTEPLASE
     Indication: COVID-19
     Route: 042
     Dates: start: 20200404, end: 20200404
  3. ENOXAPARIN [Concomitant]
     Active Substance: ENOXAPARIN
  4. NOREPINEPHRINE. [Concomitant]
     Active Substance: NOREPINEPHRINE

REACTIONS (3)
  - Intentional product use issue [Unknown]
  - Off label use [Unknown]
  - No adverse event [Unknown]

NARRATIVE: CASE EVENT DATE: 20200404
